FAERS Safety Report 5264378-1 (Version None)
Quarter: 2007Q1

REPORT INFORMATION
  Report Type: 
  Country: None (occurrence: None)
  Receive Date: 20070309
  Receipt Date: 20070223
  Transmission Date: 20070707
  Serious: Yes (Other)
  Sender: FDA-Public Use
  Company Number: 15210

PATIENT
  Age: 26 Year
  Sex: Male
  Weight: 75 kg

DRUGS (3)
  1. CYTARABINE [Suspect]
     Indication: ACUTE MYELOID LEUKAEMIA
     Dosage: 3 G/M2 BID IV
     Route: 042
     Dates: start: 20061117, end: 20061123
  2. ONDANSETRON [Concomitant]
  3. LEVOMEPROMAZINE [Concomitant]

REACTIONS (1)
  - GRAND MAL CONVULSION [None]
